FAERS Safety Report 18201895 (Version 1)
Quarter: 2020Q3

REPORT INFORMATION
  Report Type: Spontaneous
  Country: US (occurrence: US)
  Receive Date: 20200826
  Receipt Date: 20200826
  Transmission Date: 20201103
  Serious: No
  Sender: FDA-Public Use
  Company Number: None

PATIENT
  Age: 72 Year
  Sex: Female
  Weight: 61.23 kg

DRUGS (2)
  1. OTEZLA [Suspect]
     Active Substance: APREMILAST
     Indication: PSORIASIS
     Dosage: AS DIRECTED
     Route: 048
     Dates: start: 201809
  2. OTEZLA [Suspect]
     Active Substance: APREMILAST
     Indication: SENILE OSTEOPOROSIS
     Dosage: AS DIRECTED
     Route: 048
     Dates: start: 201809

REACTIONS (1)
  - Hospitalisation [None]
